FAERS Safety Report 7217127-1 (Version None)
Quarter: 2011Q1

REPORT INFORMATION
  Report Type: 
  Country: None (occurrence: None)
  Receive Date: 20110110
  Receipt Date: 20110105
  Transmission Date: 20110831
  Serious: Yes (Hospitalization)
  Sender: FDA-Public Use
  Company Number: GB-JNJFOC-20101203395

PATIENT
  Age: 20 Year
  Sex: Male

DRUGS (5)
  1. RISPERDAL CONSTA [Suspect]
     Route: 030
  2. SEMISODIUM VALPROATE [Suspect]
     Dosage: 1 G IN THE MORNING AND 500MG AT NIGHT
  3. CLOZAPINE [Suspect]
     Indication: SCHIZOPHRENIA
     Route: 065
  4. SEMISODIUM VALPROATE [Suspect]
     Indication: DRUG THERAPY
  5. RISPERDAL CONSTA [Suspect]
     Indication: SCHIZOPHRENIA
     Route: 030

REACTIONS (5)
  - ELECTROCARDIOGRAM T WAVE INVERSION [None]
  - TACHYCARDIA [None]
  - ELECTROCARDIOGRAM ST SEGMENT ELEVATION [None]
  - INAPPROPRIATE SCHEDULE OF DRUG ADMINISTRATION [None]
  - WHITE BLOOD CELL COUNT DECREASED [None]
